FAERS Safety Report 14091684 (Version 1)
Quarter: 2017Q4

REPORT INFORMATION
  Report Type: Spontaneous
  Country: BR (occurrence: BR)
  Receive Date: 20171016
  Receipt Date: 20171016
  Transmission Date: 20180321
  Serious: Yes (Other)
  Sender: FDA-Public Use
  Company Number: BR-SUN PHARMACEUTICAL INDUSTRIES LTD-2017R1-152389

PATIENT
  Sex: Male

DRUGS (2)
  1. DIHYDROTESTOSTERONE [Suspect]
     Active Substance: STANOLONE
     Indication: SUBSTANCE USE DISORDER
     Route: 065
  2. TESTOSTERONE. [Suspect]
     Active Substance: TESTOSTERONE
     Indication: SUBSTANCE USE DISORDER
     Route: 065

REACTIONS (2)
  - Psychotic disorder [Unknown]
  - Hallucination [Unknown]
